FAERS Safety Report 5692621-3 (Version None)
Quarter: 2008Q2

REPORT INFORMATION
  Report Type: 
  Country: None (occurrence: None)
  Receive Date: 20080401
  Receipt Date: 20080325
  Transmission Date: 20081010
  Serious: Yes (Other)
  Sender: FDA-Public Use
  Company Number: 2008SP005930

PATIENT
  Sex: Female

DRUGS (3)
  1. PEG-INTRON [Suspect]
     Indication: HEPATITIS C
     Dates: start: 20071111, end: 20080301
  2. RIBAVIRIN [Suspect]
     Indication: HEPATITIS C
     Dosage: ; PO
     Route: 048
     Dates: start: 20071111, end: 20080301
  3. ASPIRIN [Suspect]
     Indication: HEADACHE
     Dosage: ; PO
     Route: 048

REACTIONS (3)
  - CATARACT [None]
  - DIZZINESS [None]
  - HEADACHE [None]
